FAERS Safety Report 15711312 (Version 8)
Quarter: 2020Q3

REPORT INFORMATION
  Report Type: Report from Study
  Country: US (occurrence: US)
  Receive Date: 20181211
  Receipt Date: 20200713
  Transmission Date: 20201102
  Serious: Yes (Hospitalization)
  Sender: FDA-Public Use
  Company Number: US-ACTELION-A-US2018-183444

PATIENT
  Age: 39 Year
  Sex: Female
  Weight: 92.06 kg

DRUGS (3)
  1. OPSUMIT [Suspect]
     Active Substance: MACITENTAN
     Indication: PULMONARY ARTERIAL HYPERTENSION
     Dosage: 10 MG, QD
     Route: 048
  2. ADEMPAS [Suspect]
     Active Substance: RIOCIGUAT
     Indication: PRODUCT USED FOR UNKNOWN INDICATION
     Route: 065
  3. VENTAVIS [Concomitant]
     Active Substance: ILOPROST
     Indication: PULMONARY ARTERIAL HYPERTENSION
     Route: 055

REACTIONS (22)
  - Fatigue [Unknown]
  - Weight increased [Not Recovered/Not Resolved]
  - Fall [Unknown]
  - Dyspnoea exertional [Unknown]
  - Stress [Not Recovered/Not Resolved]
  - Feeling hot [Unknown]
  - Loss of consciousness [Unknown]
  - Headache [Unknown]
  - Poor quality sleep [Unknown]
  - Continuous positive airway pressure [Unknown]
  - Memory impairment [Unknown]
  - Nasopharyngitis [Unknown]
  - Sinusitis [Unknown]
  - Hypoaesthesia [Recovered/Resolved]
  - Asthenia [Not Recovered/Not Resolved]
  - Amnesia [Unknown]
  - Dyspnoea at rest [Unknown]
  - Hospitalisation [Unknown]
  - Limb discomfort [Recovered/Resolved]
  - Presyncope [Recovered/Resolved]
  - Decreased activity [Not Recovered/Not Resolved]
  - Skin laceration [Unknown]

NARRATIVE: CASE EVENT DATE: 20190128
